FAERS Safety Report 7460691-8 (Version None)
Quarter: 2011Q2

REPORT INFORMATION
  Report Type: 
  Country: None (occurrence: None)
  Receive Date: 20110505
  Receipt Date: 20110503
  Transmission Date: 20111010
  Serious: Yes (Other)
  Sender: FDA-Public Use
  Company Number: US-PFIZER INC-2011095521

PATIENT
  Age: 62 Year
  Sex: Female

DRUGS (1)
  1. PREPARATION H [Suspect]
     Indication: LAXATIVE SUPPORTIVE CARE
     Dosage: UNK

REACTIONS (2)
  - DIARRHOEA [None]
  - HAEMORRHAGE [None]
